FAERS Safety Report 5204258-0 (Version None)
Quarter: 2007Q1

REPORT INFORMATION
  Report Type: 
  Country: None (occurrence: None)
  Receive Date: 20070110
  Receipt Date: 20060123
  Transmission Date: 20070707
  Serious: No
  Sender: FDA-Public Use
  Company Number: US-BRISTOL-MYERS SQUIBB COMPANY-13259411

PATIENT
  Sex: Female

DRUGS (3)
  1. ABILIFY [Suspect]
     Indication: BIPOLAR I DISORDER
     Dosage: ABILIFY: DOSE INCREASED TO 15MG QD IN 2004 WITHIN 2 WEEKS OF INITIATION; DOSE DECREASED IN OCT-2005
     Dates: start: 20040101
  2. WELLBUTRIN [Concomitant]
  3. LAMICTAL [Concomitant]

REACTIONS (2)
  - BLEPHAROSPASM [None]
  - TARDIVE DYSKINESIA [None]
